FAERS Safety Report 8510584-X (Version None)
Quarter: 2012Q3

REPORT INFORMATION
  Report Type: 
  Country: None (occurrence: None)
  Receive Date: 20120716
  Receipt Date: 20120706
  Transmission Date: 20120928
  Serious: Yes (Hospitalization)
  Sender: FDA-Public Use
  Company Number: US-BIOGENIDEC-2012BI007252

PATIENT
  Age: 46 Year
  Sex: Male

DRUGS (2)
  1. AVONEX [Suspect]
     Indication: MULTIPLE SCLEROSIS
     Route: 030
     Dates: start: 20030621, end: 20040504
  2. AVONEX [Suspect]
     Route: 030
     Dates: start: 20040601, end: 20120501

REACTIONS (8)
  - BLOOD PRESSURE SYSTOLIC DECREASED [None]
  - CEREBROVASCULAR ACCIDENT [None]
  - DIABETES MELLITUS [None]
  - OEDEMA PERIPHERAL [None]
  - HYPOTENSION [None]
  - HEADACHE [None]
  - PAIN IN EXTREMITY [None]
  - VOMITING [None]
